FAERS Safety Report 17271592 (Version 2)
Quarter: 2022Q1

REPORT INFORMATION
  Report Type: Spontaneous
  Country: PT (occurrence: PT)
  Receive Date: 20200115
  Receipt Date: 20220314
  Transmission Date: 20220423
  Serious: Yes (Death)
  Sender: FDA-Public Use
  Company Number: PT-SUN PHARMACEUTICAL INDUSTRIES LTD-2019R1-232710

PATIENT
  Age: 69 Year
  Sex: Female

DRUGS (8)
  1. METHOTREXATE [Suspect]
     Active Substance: METHOTREXATE
     Indication: Angiocentric lymphoma
     Dosage: UNK (200MG INTRAVENOUS OVER 6 HOURS DAY 1)
     Route: 042
     Dates: start: 20151207
  2. ASPARAGINASE [Suspect]
     Active Substance: ASPARAGINASE
     Indication: Angiocentric lymphoma
     Dosage: UNK (1000 UI OVER 30MINS DAY 8)
     Route: 042
     Dates: start: 20151207
  3. ASPARAGINASE [Suspect]
     Active Substance: ASPARAGINASE
     Dosage: UNK (6000 UI OVER 2 HOURS)
     Route: 042
     Dates: start: 20151207
  4. DEXAMETHASONE [Suspect]
     Active Substance: DEXAMETHASONE
     Indication: Angiocentric lymphoma
     Dosage: UNK (40MG PER OS, DAY 2-4) EVERY 28 DAYS
     Route: 065
     Dates: start: 20151207
  5. IFOSFAMIDE [Suspect]
     Active Substance: IFOSFAMIDE
     Indication: Angiocentric lymphoma
     Dosage: UNK (1500MG OVER 2 HOURS OVER 2 HOURS, DAY 2-4)
     Route: 042
     Dates: start: 20151207
  6. ETOPOSIDE [Suspect]
     Active Substance: ETOPOSIDE
     Indication: Angiocentric lymphoma
     Dosage: UNK (100MG OVER 2 HOURS) DAY 2-4
     Route: 042
     Dates: start: 20151207
  7. ONDANSETRON [Concomitant]
     Active Substance: ONDANSETRON
     Indication: Product used for unknown indication
     Dosage: UNK (8MG DAY 1-3)
     Route: 042
  8. LEUCOVORIN [Concomitant]
     Active Substance: LEUCOVORIN
     Indication: Product used for unknown indication
     Dosage: UNK (15MG)
     Route: 042

REACTIONS (3)
  - Multiple organ dysfunction syndrome [Fatal]
  - Pancytopenia [Fatal]
  - Infection [Fatal]
